FAERS Safety Report 9781010 (Version 2)
Quarter: 2014Q3

REPORT INFORMATION
  Report Type: Spontaneous
  Country: DK (occurrence: DK)
  Receive Date: 20131224
  Receipt Date: 20140828
  Transmission Date: 20150326
  Serious: Yes (Life-Threatening, Hospitalization)
  Sender: FDA-Public Use
  Company Number: DK-NOVOPROD-395949

PATIENT
  Age: 47 Year
  Sex: Female

DRUGS (8)
  1. VICTOZA [Suspect]
     Active Substance: LIRAGLUTIDE
     Indication: TYPE 2 DIABETES MELLITUS
     Dosage: STYRKE: 6 MG/ML
     Route: 058
     Dates: start: 20100201, end: 20131214
  2. LANSOPRAZOL ACTAVIS [Concomitant]
  3. IMOCLONE [Concomitant]
     Active Substance: ZOPICLONE
  4. TRIATEC                            /00116401/ [Concomitant]
     Active Substance: HYDROCHLOROTHIAZIDE
  5. TOVIAZ [Concomitant]
     Active Substance: FESOTERODINE FUMARATE
  6. IBUPROFEN ACTAVIS [Concomitant]
  7. METFORMIN ACTAVIS [Suspect]
     Active Substance: METFORMIN HYDROCHLORIDE
     Indication: TYPE 2 DIABETES MELLITUS
  8. PINEX                              /00020001/ [Concomitant]
     Active Substance: ACETAMINOPHEN

REACTIONS (4)
  - Pancreatitis acute [Recovering/Resolving]
  - Disorientation [Recovering/Resolving]
  - Renal failure [Recovering/Resolving]
  - Diabetes mellitus inadequate control [Recovering/Resolving]

NARRATIVE: CASE EVENT DATE: 20131214
